FAERS Safety Report 5219724-1 (Version None)
Quarter: 2007Q1

REPORT INFORMATION
  Report Type: 
  Country: None (occurrence: None)
  Receive Date: 20061201
  Receipt Date: 20060727
  Transmission Date: 20070707
  Serious: No
  Sender: FDA-Public Use
  Company Number: 2006PV018444

PATIENT
  Age: 59 Year
  Sex: Female

DRUGS (3)
  1. BYETTA [Suspect]
     Indication: DIABETES MELLITUS NON-INSULIN-DEPENDENT
     Dosage: 5 SEE IMAGE
     Route: 058
     Dates: start: 20060717, end: 20060101
  2. BYETTA [Suspect]
     Indication: DIABETES MELLITUS NON-INSULIN-DEPENDENT
     Dosage: 5 SEE IMAGE
     Route: 058
     Dates: start: 20060101
  3. . [Concomitant]

REACTIONS (4)
  - BURNING SENSATION [None]
  - CHEST PAIN [None]
  - DYSPEPSIA [None]
  - ERUCTATION [None]
